FAERS Safety Report 8150744-3 (Version None)
Quarter: 2012Q1

REPORT INFORMATION
  Report Type: 
  Country: None (occurrence: None)
  Receive Date: 20120220
  Receipt Date: 20120206
  Transmission Date: 20120608
  Serious: Yes (Other)
  Sender: FDA-Public Use
  Company Number: BR-AMGEN-BRASP2012009024

PATIENT
  Age: 43 Year
  Sex: Female
  Weight: 64 kg

DRUGS (2)
  1. METICORTEN [Concomitant]
     Indication: RHEUMATOID ARTHRITIS
     Dosage: 20 MG (4 TABLETS OF 5MG), 1X/ WEEKLY
  2. ENBREL [Suspect]
     Indication: RHEUMATOID ARTHRITIS
     Dosage: 50 MG, 1X/ WEEKLY
     Route: 058
     Dates: start: 20111001

REACTIONS (6)
  - HYPERTENSION [None]
  - HEADACHE [None]
  - MUSCLE SPASMS [None]
  - SOMNOLENCE [None]
  - RASH MACULAR [None]
  - SWELLING [None]
